FAERS Safety Report 23247912 (Version 1)
Quarter: 2023Q4

REPORT INFORMATION
  Report Type: Spontaneous
  Country: US (occurrence: US)
  Receive Date: 20231130
  Receipt Date: 20231130
  Transmission Date: 20240110
  Serious: Yes (Hospitalization)
  Sender: FDA-Public Use
  Company Number: US-MYLANLABS-2023M1127087

PATIENT
  Age: 60 Year
  Sex: Male

DRUGS (16)
  1. DEXAMETHASONE [Suspect]
     Active Substance: DEXAMETHASONE
     Indication: COVID-19 pneumonia
     Dosage: 4 MILLIGRAM, QD
     Route: 042
  2. FLUCONAZOLE [Suspect]
     Active Substance: FLUCONAZOLE
     Indication: Disseminated aspergillosis
     Dosage: 200 MILLIGRAM, BID
     Route: 048
  3. FLUCONAZOLE [Suspect]
     Active Substance: FLUCONAZOLE
     Indication: Aspergillus infection
  4. FLUCONAZOLE [Suspect]
     Active Substance: FLUCONAZOLE
     Indication: Endophthalmitis
  5. VORICONAZOLE [Suspect]
     Active Substance: VORICONAZOLE
     Indication: Disseminated aspergillosis
     Dosage: 4 MILLIGRAM/KILOGRAM, BID; Q12
  6. VORICONAZOLE [Suspect]
     Active Substance: VORICONAZOLE
     Indication: Aspergillus infection
  7. VORICONAZOLE [Suspect]
     Active Substance: VORICONAZOLE
     Indication: Endophthalmitis
  8. TOCILIZUMAB [Suspect]
     Active Substance: TOCILIZUMAB
     Indication: COVID-19 pneumonia
     Dosage: 560 MILLIGRAM, QD; ON DAY 2
     Route: 065
  9. AMPHOTERICIN B [Suspect]
     Active Substance: AMPHOTERICIN B
     Indication: Disseminated aspergillosis
     Dosage: UNK; 5 MICROG/0.1ML
     Route: 065
  10. AMPHOTERICIN B [Suspect]
     Active Substance: AMPHOTERICIN B
     Indication: Aspergillus infection
  11. AMPHOTERICIN B [Suspect]
     Active Substance: AMPHOTERICIN B
     Indication: Endophthalmitis
  12. REMDESIVIR [Concomitant]
     Active Substance: REMDESIVIR
     Indication: COVID-19 pneumonia
     Dosage: 100 MILLIGRAM, QD
     Route: 042
  13. PREDNISOLONE [Concomitant]
     Active Substance: PREDNISOLONE
     Indication: Endophthalmitis
     Dosage: UNK
     Route: 061
  14. AZITHROMYCIN [Concomitant]
     Active Substance: AZITHROMYCIN
     Indication: Endophthalmitis
     Dosage: 500 MILLIGRAM, QD
     Route: 048
  15. VALACYCLOVIR [Concomitant]
     Active Substance: VALACYCLOVIR HYDROCHLORIDE
     Indication: Endophthalmitis
     Dosage: 1 GRAM, QD
     Route: 065
  16. CEFTRIAXONE [Concomitant]
     Active Substance: CEFTRIAXONE\CEFTRIAXONE SODIUM
     Indication: Endophthalmitis
     Dosage: 1 GRAM, QD
     Route: 042

REACTIONS (6)
  - Disseminated aspergillosis [Recovered/Resolved]
  - Aspergillus infection [Recovered/Resolved]
  - Endophthalmitis [Recovered/Resolved]
  - Drug ineffective [Unknown]
  - Drug resistance [Unknown]
  - Off label use [Recovered/Resolved]
